FAERS Safety Report 5108401-3 (Version None)
Quarter: 2006Q3

REPORT INFORMATION
  Report Type: 
  Country: None (occurrence: None)
  Receive Date: 20060919
  Receipt Date: 20060831
  Transmission Date: 20061208
  Serious: Yes (Hospitalization)
  Sender: FDA-Public Use
  Company Number: US-BOEHRINGER INGELHEIM PHARMACEUTICALS, INC.-2006-BP-10330BP

PATIENT
  Sex: Female

DRUGS (2)
  1. AGGRENOX [Suspect]
     Indication: VASCULAR SHUNT
     Dates: start: 20060209, end: 20060407
  2. PLACEBO (BLIND) [Suspect]
     Indication: VASCULAR SHUNT
     Dates: start: 20060209, end: 20060407

REACTIONS (4)
  - ABNORMAL FAECES [None]
  - DIALYSIS [None]
  - DIARRHOEA [None]
  - PYREXIA [None]
